FAERS Safety Report 8854598 (Version 1)
Quarter: 2012Q4

REPORT INFORMATION
  Report Type: 
  Country: US (occurrence: US)
  Receive Date: 20121023
  Receipt Date: 20121023
  Transmission Date: 20130627
  Serious: Yes (Other)
  Sender: FDA-Public Use
  Company Number: US-BAYER-2012-108861

PATIENT
  Age: 62 Year
  Sex: Female
  Weight: 61.22 kg

DRUGS (1)
  1. BAYER ADVANCED ASPIRIN EXTRA STRENGTH [Suspect]
     Dosage: 1 TAB, PRN
     Route: 048
     Dates: start: 201204

REACTIONS (3)
  - Foreign body [Recovered/Resolved]
  - Throat tightness [Recovered/Resolved]
  - Retching [Recovered/Resolved]
